FAERS Safety Report 19898494 (Version 2)
Quarter: 2021Q4

REPORT INFORMATION
  Report Type: Spontaneous
  Country: IN (occurrence: IN)
  Receive Date: 20210930
  Receipt Date: 20211013
  Transmission Date: 20220303
  Serious: No
  Sender: FDA-Public Use
  Company Number: IN-LUPIN LIMITED-2021-18367

PATIENT
  Age: 49 Year
  Sex: Female

DRUGS (8)
  1. RABEPRAZOLE [Suspect]
     Active Substance: RABEPRAZOLE
     Indication: Gastric disorder
     Dosage: 1 DOSAGE FORM (1 CAP FOR 10 DAYS)
     Route: 065
     Dates: start: 20210819
  2. BUDESONIDE\FORMOTEROL FUMARATE [Suspect]
     Active Substance: BUDESONIDE\FORMOTEROL FUMARATE
     Indication: Asthma
     Dosage: UNK, BID
     Route: 065
     Dates: start: 20210819
  3. IPRATROPIUM BROMIDE\LEVALBUTEROL SULFATE [Suspect]
     Active Substance: IPRATROPIUM BROMIDE\LEVALBUTEROL SULFATE
     Indication: Asthma
     Dosage: 1 DOSAGE FORM
     Route: 065
     Dates: start: 20210819
  4. AZELASTINE HYDROCHLORIDE\FLUTICASONE PROPIONATE [Suspect]
     Active Substance: AZELASTINE HYDROCHLORIDE\FLUTICASONE PROPIONATE
     Indication: Product used for unknown indication
     Dosage: UNK, BID, (TWICE DAILY)
     Route: 045
     Dates: start: 20210819
  5. AMBROXOL ACEFYLLINATE\MONTELUKAST SODIUM [Suspect]
     Active Substance: AMBROXOL ACEFYLLINATE\MONTELUKAST SODIUM
     Indication: Asthma
     Dosage: 1 DOSAGE FORM (1 CAPSULE)
     Route: 065
     Dates: start: 20210819
  6. DEFLAZACORT [Suspect]
     Active Substance: DEFLAZACORT
     Indication: Arthralgia
     Dosage: 1 DOSAGE FORM, (1 CAP)
     Route: 065
     Dates: start: 20210819
  7. AZITHROMYCIN [Suspect]
     Active Substance: AZITHROMYCIN
     Indication: Antibiotic therapy
     Dosage: 1 DOSAGE FORM, 1 CAP
     Route: 065
     Dates: start: 20210819
  8. Neurocaps e [Concomitant]
     Indication: Arthralgia
     Dosage: UNK
     Route: 065
     Dates: start: 20210819

REACTIONS (3)
  - Vascular compression [Not Recovered/Not Resolved]
  - Back pain [Not Recovered/Not Resolved]
  - Fall [Unknown]

NARRATIVE: CASE EVENT DATE: 20210702
